FAERS Safety Report 18673825 (Version 2)
Quarter: 2021Q1

REPORT INFORMATION
  Report Type: Spontaneous
  Country: US (occurrence: US)
  Receive Date: 20201228
  Receipt Date: 20210202
  Transmission Date: 20210419
  Serious: No
  Sender: FDA-Public Use
  Company Number: US-PFIZER INC-2020514210

PATIENT
  Age: 33 Year
  Sex: Female

DRUGS (6)
  1. DOCETAXEL. [Suspect]
     Active Substance: DOCETAXEL
     Dosage: 158 MG, SINGLE
     Route: 042
     Dates: start: 20200626, end: 20200626
  2. DOCETAXEL. [Suspect]
     Active Substance: DOCETAXEL
     Dosage: 158 MG, SINGLE
     Route: 042
     Dates: start: 20200313, end: 20200313
  3. DOCETAXEL. [Suspect]
     Active Substance: DOCETAXEL
     Dosage: 158 MG, SINGLE
     Route: 042
     Dates: start: 20200403, end: 20200403
  4. DOCETAXEL. [Suspect]
     Active Substance: DOCETAXEL
     Dosage: 158 MG, SINGLE
     Route: 042
     Dates: start: 20200424, end: 20200424
  5. DOCETAXEL. [Suspect]
     Active Substance: DOCETAXEL
     Dosage: 158 MG, SINGLE
     Route: 042
     Dates: start: 20200605, end: 20200605
  6. DOCETAXEL. [Suspect]
     Active Substance: DOCETAXEL
     Dosage: 158 MG, SINGLE
     Route: 042
     Dates: start: 20200717, end: 20200717

REACTIONS (1)
  - Eye injury [Unknown]
